FAERS Safety Report 9344103 (Version 2)
Quarter: 2013Q3

REPORT INFORMATION
  Report Type: Spontaneous
  Country: FR (occurrence: FR)
  Receive Date: 20130612
  Receipt Date: 20130917
  Transmission Date: 20140515
  Serious: Yes (Death, Hospitalization)
  Sender: FDA-Public Use
  Company Number: PHHY2013FR058151

PATIENT
  Age: 39 Year
  Sex: Female

DRUGS (7)
  1. GLIVEC [Suspect]
     Indication: ACUTE LYMPHOCYTIC LEUKAEMIA
     Dosage: 400 MG, QD
     Route: 048
     Dates: start: 20121129, end: 201303
  2. CYTARABINE [Suspect]
     Dosage: UNK UKN, UNK
  3. METHOTREXATE [Suspect]
     Indication: ACUTE LYMPHOCYTIC LEUKAEMIA
     Dosage: UNK
     Dates: start: 20121123, end: 20130318
  4. VINCRISTINE [Suspect]
     Indication: ACUTE LYMPHOCYTIC LEUKAEMIA
     Dosage: UNK
     Dates: start: 20121129, end: 20130304
  5. DEXAMETHASONE [Concomitant]
     Dosage: 20 MG/5 ML PER CYCLE
     Route: 042
     Dates: start: 20121129, end: 20130318
  6. METHYLPREDNISOLONE [Concomitant]
     Dosage: UNK UKN, UNK
     Route: 037
     Dates: start: 20130118, end: 20130320
  7. CORTANCYL [Concomitant]
     Dosage: 100 MG, QD
     Route: 048
     Dates: start: 20121122

REACTIONS (3)
  - Sepsis [Fatal]
  - Ventricular hypokinesia [Not Recovered/Not Resolved]
  - Ejection fraction decreased [Recovering/Resolving]
